FAERS Safety Report 5236216-4 (Version None)
Quarter: 2007Q1

REPORT INFORMATION
  Report Type: 
  Country: None (occurrence: None)
  Receive Date: 20061208
  Receipt Date: 20060120
  Transmission Date: 20070707
  Serious: Yes (Other)
  Sender: FDA-Public Use
  Company Number: 2006UW01058

PATIENT
  Age: 69 Year
  Sex: Male
  Weight: 123.37 kg

DRUGS (5)
  1. CRESTOR [Suspect]
     Dosage: 10 MG PO
     Route: 048
  2. LANOXIN [Concomitant]
  3. COUMADIN [Concomitant]
  4. DIOVAN [Concomitant]
  5. COREG [Concomitant]

REACTIONS (2)
  - PAIN IN EXTREMITY [None]
  - SENSATION OF HEAVINESS [None]
